FAERS Safety Report 26186866 (Version 1)
Quarter: 2025Q4

REPORT INFORMATION
  Report Type: Spontaneous
  Country: US (occurrence: US)
  Receive Date: 20251222
  Receipt Date: 20251222
  Transmission Date: 20260118
  Serious: No
  Sender: CSL BEHRING
  Company Number: US-BEH-2025229359

PATIENT
  Age: 13 Year
  Sex: Male

DRUGS (4)
  1. AFSTYLA ANTIHEMOPHILIC FACTOR (RECOMBINANT), SINGLE CHAIN [Suspect]
     Active Substance: LONOCTOCOG ALFA
     Indication: Factor VIII deficiency
     Dosage: 1300 IU, (1170-1430) PRN
     Route: 042
     Dates: start: 202403
  2. AFSTYLA ANTIHEMOPHILIC FACTOR (RECOMBINANT), SINGLE CHAIN [Suspect]
     Active Substance: LONOCTOCOG ALFA
     Indication: Factor VIII deficiency
     Dosage: 1300 IU, (1170-1430) PRN
     Route: 042
     Dates: start: 202403
  3. AFSTYLA ANTIHEMOPHILIC FACTOR (RECOMBINANT), SINGLE CHAIN [Suspect]
     Active Substance: LONOCTOCOG ALFA
     Dosage: 2000 IU, (1800-2200), PRN
     Route: 042
     Dates: start: 202403
  4. AFSTYLA ANTIHEMOPHILIC FACTOR (RECOMBINANT), SINGLE CHAIN [Suspect]
     Active Substance: LONOCTOCOG ALFA
     Dosage: 2000 IU, (1800-2200), PRN
     Route: 042
     Dates: start: 202403

REACTIONS (3)
  - Haemorrhage [Unknown]
  - Peripheral swelling [Unknown]
  - Skin discolouration [Unknown]

NARRATIVE: CASE EVENT DATE: 20250101
